FAERS Safety Report 7942602-1 (Version None)
Quarter: 2011Q4

REPORT INFORMATION
  Report Type: 
  Country: None (occurrence: None)
  Receive Date: 20111128
  Receipt Date: 20111121
  Transmission Date: 20120403
  Serious: Yes (Other)
  Sender: FDA-Public Use
  Company Number: DE-GLAXOSMITHKLINE-D0073513A

PATIENT
  Sex: Female
  Weight: 125.7 kg

DRUGS (3)
  1. FALITHROM [Suspect]
     Indication: THROMBOSIS PROPHYLAXIS
     Route: 048
  2. METHYLDOPA [Concomitant]
     Indication: HYPERTENSION
     Dosage: 250MG TWICE PER DAY
     Route: 048
  3. ARIXTRA [Suspect]
     Indication: THROMBOSIS PROPHYLAXIS
     Dosage: 10MG PER DAY
     Route: 058

REACTIONS (2)
  - ABORTION MISSED [None]
  - MATERNAL EXPOSURE DURING PREGNANCY [None]
